FAERS Safety Report 10125976 (Version 2)
Quarter: 2015Q1

REPORT INFORMATION
  Report Type: Other
  Country: US (occurrence: US)
  Receive Date: 20140427
  Receipt Date: 20150205
  Transmission Date: 20150720
  Serious: Yes (Death, Hospitalization, Other)
  Sender: FDA-Public Use
  Company Number: US-GSKPPD-2014GSK029090

PATIENT
  Age: 68 Year
  Sex: Male

DRUGS (9)
  1. AVANDARYL [Suspect]
     Active Substance: GLIMEPIRIDE\ROSIGLITAZONE MALEATE
     Indication: DIABETES MELLITUS
     Dosage: DATES OF AVANDARYL USE COULD NOT BE CONFIRMED IN RECORDS REVIEWED.
  2. DIOVAN [Concomitant]
     Active Substance: VALSARTAN
  3. ASPIRIN. [Concomitant]
     Active Substance: ASPIRIN
  4. ZESTRIL [Concomitant]
     Active Substance: LISINOPRIL
  5. LABETALOL [Concomitant]
     Active Substance: LABETALOL\LABETALOL HYDROCHLORIDE
  6. INDAPAMIDE. [Concomitant]
     Active Substance: INDAPAMIDE
  7. CATAPRES [Concomitant]
     Active Substance: CLONIDINE HYDROCHLORIDE
     Dosage: ONCE A WEEK
  8. AVANDIA [Suspect]
     Active Substance: ROSIGLITAZONE MALEATE
     Indication: DIABETES MELLITUS
     Dosage: DATES OF AVANDIA USE COULD NOT BE CONFIRMED IN RECORDS REVIEWED.
     Route: 048
  9. HYDRALAZINE [Concomitant]
     Active Substance: HYDRALAZINE HYDROCHLORIDE

REACTIONS (3)
  - Cardiac failure congestive [Fatal]
  - Cerebrovascular accident [Unknown]
  - Cardiac failure congestive [Recovered/Resolved]

NARRATIVE: CASE EVENT DATE: 20050331
